FAERS Safety Report 14785592 (Version 2)
Quarter: 2020Q1

REPORT INFORMATION
  Report Type: Spontaneous
  Country: IT (occurrence: IT)
  Receive Date: 20180420
  Receipt Date: 20200323
  Transmission Date: 20200409
  Serious: Yes (Hospitalization, Other)
  Sender: FDA-Public Use
  Company Number: IT-SHIRE-IT201813677

PATIENT

DRUGS (4)
  1. MESAVANCOL [Suspect]
     Active Substance: MESALAMINE
     Indication: CROHN^S DISEASE
     Dosage: 2400 MG, UNK
     Route: 048
     Dates: start: 20180309, end: 20180327
  2. INTESTICORT [Concomitant]
     Indication: CROHN^S DISEASE
  3. FLAGYL [Concomitant]
     Active Substance: METRONIDAZOLE\METRONIDAZOLE HYDROCHLORIDE
     Indication: DIARRHOEA HAEMORRHAGIC
  4. TOPSTER [Concomitant]
     Indication: CROHN^S DISEASE
     Dosage: 1 DOSAGE FORM
     Route: 054
     Dates: start: 20180215, end: 20180327

REACTIONS (11)
  - Diarrhoea [Recovered/Resolved]
  - Pyrexia [Recovered/Resolved]
  - Leukopenia [Recovering/Resolving]
  - Vomiting [Recovered/Resolved]
  - Thrombocytopenia [Recovering/Resolving]
  - Nausea [Recovered/Resolved]
  - Back pain [Recovering/Resolving]
  - Product use in unapproved indication [Recovered/Resolved]
  - Abdominal pain upper [Recovering/Resolving]
  - Gamma-glutamyltransferase increased [Recovering/Resolving]
  - Feeding disorder [Recovering/Resolving]

NARRATIVE: CASE EVENT DATE: 20180325
